FAERS Safety Report 25494487 (Version 4)
Quarter: 2025Q4

REPORT INFORMATION
  Report Type: Report from Study
  Country: EU (occurrence: EU)
  Receive Date: 20250630
  Receipt Date: 20251218
  Transmission Date: 20260117
  Serious: No
  Sender: EXELIXIS
  Company Number: EU-IPSEN Group, Research and Development-2025-02365

PATIENT

DRUGS (28)
  1. CABOZANTINIB [Suspect]
     Active Substance: CABOZANTINIB
     Indication: Renal cell carcinoma
     Dosage: 40 MG, QD (MORNING)
     Dates: start: 20250204, end: 20250701
  2. CABOZANTINIB [Suspect]
     Active Substance: CABOZANTINIB
     Dosage: 40 MG, QD
     Dates: start: 20250731, end: 20251021
  3. CABOZANTINIB [Suspect]
     Active Substance: CABOZANTINIB
     Dosage: 40 MG, QD
     Dates: start: 20251029
  4. NIVOLUMAB [Suspect]
     Active Substance: NIVOLUMAB
     Indication: Renal cell carcinoma
     Dosage: 240 MG
     Dates: start: 20241209
  5. NIVOLUMAB [Suspect]
     Active Substance: NIVOLUMAB
     Dosage: 240 MG
     Dates: start: 20241223
  6. NIVOLUMAB [Suspect]
     Active Substance: NIVOLUMAB
     Dosage: 240 MG
     Dates: start: 20250106
  7. NIVOLUMAB [Suspect]
     Active Substance: NIVOLUMAB
     Dosage: 240 MG
     Dates: start: 20250203
  8. NIVOLUMAB [Suspect]
     Active Substance: NIVOLUMAB
     Dosage: 240 MG
     Dates: start: 20250218
  9. NIVOLUMAB [Suspect]
     Active Substance: NIVOLUMAB
     Dosage: 240 MG
     Dates: start: 20250304
  10. NIVOLUMAB [Suspect]
     Active Substance: NIVOLUMAB
     Dosage: ONGOING
     Dates: start: 20250318
  11. NIVOLUMAB [Suspect]
     Active Substance: NIVOLUMAB
     Dosage: ONGOING
     Dates: start: 20250401
  12. NIVOLUMAB [Suspect]
     Active Substance: NIVOLUMAB
     Dosage: ONGOING
     Dates: start: 20250415
  13. NIVOLUMAB [Suspect]
     Active Substance: NIVOLUMAB
     Dosage: ONGOING
     Dates: start: 20250429
  14. NIVOLUMAB [Suspect]
     Active Substance: NIVOLUMAB
     Dosage: ONGOING
     Dates: start: 20250513
  15. NIVOLUMAB [Suspect]
     Active Substance: NIVOLUMAB
     Dosage: ONGOING
     Dates: start: 20250527
  16. NIVOLUMAB [Suspect]
     Active Substance: NIVOLUMAB
     Dosage: ONGOING
     Dates: start: 20250611
  17. NIVOLUMAB [Suspect]
     Active Substance: NIVOLUMAB
     Dosage: ONGOING
     Dates: start: 20250625
  18. NIVOLUMAB [Suspect]
     Active Substance: NIVOLUMAB
     Dosage: ONGOING
     Dates: start: 20250709
  19. NIVOLUMAB [Suspect]
     Active Substance: NIVOLUMAB
     Dosage: ONGOING
     Dates: start: 20250812
  20. NIVOLUMAB [Suspect]
     Active Substance: NIVOLUMAB
     Dosage: ONGOING
     Dates: start: 20250826
  21. NIVOLUMAB [Suspect]
     Active Substance: NIVOLUMAB
     Dosage: ONGOING
     Dates: start: 20250909
  22. NIVOLUMAB [Suspect]
     Active Substance: NIVOLUMAB
     Dosage: ONGOING
     Dates: start: 20250923
  23. NIVOLUMAB [Suspect]
     Active Substance: NIVOLUMAB
     Dosage: ONGOING
     Dates: start: 20251007
  24. NIVOLUMAB [Suspect]
     Active Substance: NIVOLUMAB
     Dosage: ONGOING
     Dates: start: 20251029
  25. NIVOLUMAB [Suspect]
     Active Substance: NIVOLUMAB
     Dosage: ONGOING
     Dates: start: 20251112
  26. NIVOLUMAB [Suspect]
     Active Substance: NIVOLUMAB
     Dosage: ONGOING
     Dates: start: 20251126
  27. HYDROXYUREA [Concomitant]
     Active Substance: HYDROXYUREA
     Indication: Thrombocytosis
     Dosage: 500 MG, BID
     Dates: start: 20241008
  28. PENTOXIFYLLINE [Concomitant]
     Active Substance: PENTOXIFYLLINE
     Indication: Optic ischaemic neuropathy
     Dosage: 3 TIMES A DAY (TID)
     Route: 042
     Dates: start: 20251021, end: 20251024

REACTIONS (4)
  - Anal abscess [Recovered/Resolved]
  - Hypertension [Not Recovered/Not Resolved]
  - Pyrexia [Recovered/Resolved]
  - Upper respiratory tract infection [Recovered/Resolved]

NARRATIVE: CASE EVENT DATE: 20250118
